FAERS Safety Report 18181739 (Version 1)
Quarter: 2020Q3

REPORT INFORMATION
  Report Type: Spontaneous
  Country: US (occurrence: US)
  Receive Date: 20200821
  Receipt Date: 20200821
  Transmission Date: 20201103
  Serious: No
  Sender: FDA-Public Use
  Company Number: US-ASTRAZENECA-2020SF04419

PATIENT
  Sex: Male

DRUGS (3)
  1. NEXIUM 24HR [Suspect]
     Active Substance: ESOMEPRAZOLE MAGNESIUM
     Indication: PANIC ATTACK
     Dosage: UNK,(EVERY OTHER DAY OR SOMETIMES EVERY 3RD OR 4TH DAY)
     Route: 065
     Dates: start: 2019
  2. NEXIUM 24HR [Suspect]
     Active Substance: ESOMEPRAZOLE MAGNESIUM
     Indication: ANXIETY
     Dosage: UNK,(EVERY OTHER DAY OR SOMETIMES EVERY 3RD OR 4TH DAY)
     Route: 065
     Dates: start: 2019
  3. NEXIUM 24HR [Suspect]
     Active Substance: ESOMEPRAZOLE MAGNESIUM
     Indication: GASTROOESOPHAGEAL REFLUX DISEASE
     Dosage: UNK,(EVERY OTHER DAY OR SOMETIMES EVERY 3RD OR 4TH DAY)
     Route: 065
     Dates: start: 2019

REACTIONS (7)
  - Blood calcium decreased [Unknown]
  - Vitamin B12 decreased [Unknown]
  - Blood magnesium decreased [Unknown]
  - Nasal congestion [Unknown]
  - Anosmia [Unknown]
  - Upper respiratory tract congestion [Unknown]
  - Intentional product misuse [Unknown]
